FAERS Safety Report 5526210-8 (Version None)
Quarter: 2007Q4

REPORT INFORMATION
  Report Type: 
  Country: None (occurrence: None)
  Receive Date: 20071127
  Receipt Date: 20071119
  Transmission Date: 20080405
  Serious: Yes (Death, Hospitalization)
  Sender: FDA-Public Use
  Company Number: PHNU2007DE00884

PATIENT
  Age: 74 Year
  Sex: Female

DRUGS (1)
  1. GLEEVEC [Suspect]
     Indication: GASTROINTESTINAL STROMAL TUMOUR
     Route: 048

REACTIONS (4)
  - PNEUMONIA PNEUMOCOCCAL [None]
  - RECURRENT CANCER [None]
  - SEPSIS [None]
  - SURGERY [None]
